FAERS Safety Report 9524707 (Version 2)
Quarter: 2013Q4

REPORT INFORMATION
  Report Type: Spontaneous
  Country: GB (occurrence: GB)
  Receive Date: 20130916
  Receipt Date: 20131016
  Transmission Date: 20140711
  Serious: Yes (Hospitalization, Other)
  Sender: FDA-Public Use
  Company Number: PHFR2013GB005223

PATIENT
  Sex: Male

DRUGS (2)
  1. CLOZARIL [Suspect]
     Indication: SCHIZOPHRENIA
     Dosage: UNK
     Dates: start: 20070702
  2. CLOZARIL [Suspect]

REACTIONS (5)
  - Schizophrenia [Unknown]
  - Paranoia [Unknown]
  - Anxiety [Unknown]
  - Lack of spontaneous speech [Unknown]
  - Impaired self-care [Unknown]
